FAERS Safety Report 22247489 (Version 2)
Quarter: 2023Q2

REPORT INFORMATION
  Report Type: Spontaneous
  Country: CN (occurrence: CN)
  Receive Date: 20230425
  Receipt Date: 20230509
  Transmission Date: 20230722
  Serious: Yes (Hospitalization, Other)
  Sender: FDA-Public Use
  Company Number: CN-ENDO PHARMACEUTICALS INC-2023-001627

PATIENT
  Age: 64 Year
  Sex: Male

DRUGS (6)
  1. AMANTADINE HYDROCHLORIDE [Suspect]
     Active Substance: AMANTADINE HYDROCHLORIDE
     Indication: Dyskinesia
     Dosage: 100 MG, BID
     Route: 048
     Dates: start: 202103, end: 202109
  2. BENSERAZIDE\LEVODOPA [Concomitant]
     Active Substance: BENSERAZIDE\LEVODOPA
     Indication: Parkinson^s disease
     Dosage: 187.5 MG, TID (AT NORMAL TIMES)
     Route: 065
     Dates: start: 2014
  3. BENSERAZIDE\LEVODOPA [Concomitant]
     Active Substance: BENSERAZIDE\LEVODOPA
     Dosage: 125 MG, TID (DURING HOSPITALIZATION)
     Route: 048
     Dates: start: 2021
  4. BENSERAZIDE\LEVODOPA [Concomitant]
     Active Substance: BENSERAZIDE\LEVODOPA
     Dosage: 187.5 MG, TID (AT FOLLOW UP VISIT)
     Route: 048
     Dates: start: 202111
  5. PIRIBEDIL [Concomitant]
     Active Substance: PIRIBEDIL
     Indication: Parkinson^s disease
     Dosage: 50 MG, TID (AT NORMAL TIMES)
     Route: 065
     Dates: start: 2014
  6. SELEGILINE [Concomitant]
     Active Substance: SELEGILINE
     Indication: Parkinson^s disease
     Dosage: 5 MG, ONCE EACH AT 7:00 A.M. AND 1:00 P.M. (AT NORMAL TIMES)
     Route: 065
     Dates: start: 2014

REACTIONS (1)
  - Inappropriate antidiuretic hormone secretion [Recovered/Resolved]

NARRATIVE: CASE EVENT DATE: 20210903
